FAERS Safety Report 9478853 (Version 1)
Quarter: 2013Q3

REPORT INFORMATION
  Report Type: Spontaneous
  Country: US (occurrence: US)
  Receive Date: 20130827
  Receipt Date: 20130827
  Transmission Date: 20140515
  Serious: No
  Sender: FDA-Public Use
  Company Number: US-TEVA-427821USA

PATIENT
  Age: 77 Year
  Sex: Male

DRUGS (6)
  1. AZILECT [Suspect]
     Indication: PARKINSON^S DISEASE
     Dates: start: 201308, end: 20130816
  2. AZILECT [Suspect]
     Dates: start: 20130817, end: 20130818
  3. AZILECT [Suspect]
     Dates: start: 20130819
  4. LEVODOPA [Concomitant]
     Indication: PARKINSON^S DISEASE
  5. CHOLESTEROL MEDICINE [Concomitant]
     Indication: BLOOD CHOLESTEROL INCREASED
  6. BLOOD PRESSURE MEDICINE [Concomitant]
     Indication: HYPERTENSION

REACTIONS (4)
  - Hallucination [Recovered/Resolved]
  - Delusion [Recovered/Resolved]
  - Taciturnity [Unknown]
  - Incorrect dose administered [Unknown]
